FAERS Safety Report 17131635 (Version 1)
Quarter: 2019Q4

REPORT INFORMATION
  Report Type: Spontaneous
  Country: US (occurrence: US)
  Receive Date: 20191209
  Receipt Date: 20191209
  Transmission Date: 20200122
  Serious: No
  Sender: FDA-Public Use
  Company Number: US-UCBSA-2016047149

PATIENT
  Age: 21 Year
  Sex: Male
  Weight: 94.3 kg

DRUGS (8)
  1. BRIVIACT [Suspect]
     Active Substance: BRIVARACETAM
     Dosage: 50MG AT HS THEN ADDED 25MG QAM ON WEEK 3AND THE WEEK 4, 2X/DAY (BID)
     Dates: start: 2016, end: 2016
  2. BRIVIACT [Suspect]
     Active Substance: BRIVARACETAM
     Dosage: 50 MG, 2X/DAY (BID)
     Dates: start: 2016
  3. TRILEPTAL [Concomitant]
     Active Substance: OXCARBAZEPINE
     Indication: SEIZURE
     Dosage: 900, 2X/DAY (BID)
  4. BRIVIACT [Suspect]
     Active Substance: BRIVARACETAM
     Indication: GENERALISED TONIC-CLONIC SEIZURE
     Dosage: 50 MG AT HS, ONCE DAILY (QD)
     Dates: start: 20161022, end: 2016
  5. LAMOTRIGINE. [Concomitant]
     Active Substance: LAMOTRIGINE
     Indication: SEIZURE
     Dosage: 600 MG, AT HS
  6. METFORMIN [Concomitant]
     Active Substance: METFORMIN HYDROCHLORIDE
     Indication: DIABETES MELLITUS
     Dosage: 750 MG, 2X/DAY (BID)
  7. CATAPRES [Concomitant]
     Active Substance: CLONIDINE HYDROCHLORIDE
     Indication: OBSESSIVE-COMPULSIVE DISORDER
     Dosage: 0.1 MG, ONCE DAILY (QD)
  8. RISPERDAL [Concomitant]
     Active Substance: RISPERIDONE
     Indication: OBSESSIVE-COMPULSIVE DISORDER
     Dosage: 1.5 MG, 2X/DAY (BID)

REACTIONS (9)
  - Weight decreased [Not Recovered/Not Resolved]
  - Tic [Recovered/Resolved]
  - Obsessive-compulsive disorder [Recovered/Resolved]
  - Eye pain [Recovered/Resolved]
  - Aura [Unknown]
  - Intentional product misuse [Unknown]
  - Aggression [Recovered/Resolved]
  - Poor quality sleep [Recovered/Resolved]
  - Inappropriate schedule of product administration [Unknown]

NARRATIVE: CASE EVENT DATE: 2016
